FAERS Safety Report 25523992 (Version 1)
Quarter: 2025Q3

REPORT INFORMATION
  Report Type: Spontaneous
  Country: US (occurrence: US)
  Receive Date: 20250707
  Receipt Date: 20250707
  Transmission Date: 20251021
  Serious: No
  Sender: AUROBINDO
  Company Number: US-AUROBINDO-AUR-APL-2024-020427

PATIENT
  Age: 72 Year
  Sex: Male

DRUGS (1)
  1. DORZOLAMIDE HYDROCHLORIDE\TIMOLOL MALEATE [Suspect]
     Active Substance: DORZOLAMIDE HYDROCHLORIDE\TIMOLOL MALEATE
     Indication: Eye disorder
     Route: 065

REACTIONS (5)
  - Eye pain [Unknown]
  - Ocular discomfort [Unknown]
  - Visual impairment [Unknown]
  - Product deposit [Unknown]
  - Product physical issue [Unknown]
